FAERS Safety Report 12336727 (Version 3)
Quarter: 2016Q2

REPORT INFORMATION
  Report Type: Report from Study
  Country: US (occurrence: US)
  Receive Date: 20160505
  Receipt Date: 20160526
  Transmission Date: 20160815
  Serious: No
  Sender: FDA-Public Use
  Company Number: US-AMGEN-USASP2016052724

PATIENT
  Age: 77 Year
  Sex: Female

DRUGS (1)
  1. ENBREL [Suspect]
     Active Substance: ETANERCEPT
     Indication: RHEUMATOID ARTHRITIS
     Dosage: 50 MG, QWK
     Route: 065
     Dates: start: 2012

REACTIONS (7)
  - Drug dose omission [Unknown]
  - Frustration tolerance decreased [Unknown]
  - Stress [Not Recovered/Not Resolved]
  - Pain [Unknown]
  - Discomfort [Unknown]
  - Injection site pain [Unknown]
  - Device issue [Unknown]

NARRATIVE: CASE EVENT DATE: 2016
